FAERS Safety Report 6576413-9 (Version None)
Quarter: 2010Q1

REPORT INFORMATION
  Report Type: 
  Country: None (occurrence: None)
  Receive Date: 20100210
  Receipt Date: 20100204
  Transmission Date: 20100710
  Serious: Yes (Other)
  Sender: FDA-Public Use
  Company Number: US-JNJFOC-20100203981

PATIENT
  Age: 7 Year
  Sex: Male

DRUGS (1)
  1. CONCERTA [Suspect]
     Indication: ATTENTION DEFICIT/HYPERACTIVITY DISORDER
     Route: 048

REACTIONS (3)
  - AGGRESSION [None]
  - CRYING [None]
  - DISTURBANCE IN SOCIAL BEHAVIOUR [None]
